FAERS Safety Report 4970496-5 (Version None)
Quarter: 2006Q2

REPORT INFORMATION
  Report Type: 
  Country: None (occurrence: None)
  Receive Date: 20060411
  Receipt Date: 20060411
  Transmission Date: 20061013
  Serious: Yes (Life-Threatening)
  Sender: FDA-Public Use
  Company Number: None

PATIENT
  Sex: Male
  Weight: 73.6 kg

DRUGS (7)
  1. REVLIMID [Suspect]
     Indication: GLIOBLASTOMA
     Dosage: 30 MG QD PO
     Route: 048
     Dates: start: 20060117, end: 20060406
  2. DEXAMETHASONE TAB [Concomitant]
  3. KEPPRA [Concomitant]
  4. ENALAPRIL MALEATE [Concomitant]
  5. ATENOLOL [Concomitant]
  6. SIMVASTATIN [Concomitant]
  7. METFORMIN [Concomitant]

REACTIONS (6)
  - BLOOD GLUCOSE INCREASED [None]
  - DEHYDRATION [None]
  - HEADACHE [None]
  - POLYURIA [None]
  - SPEECH DISORDER [None]
  - THIRST [None]
